FAERS Safety Report 13777274 (Version 1)
Quarter: 2017Q3

REPORT INFORMATION
  Report Type: Spontaneous
  Country: US (occurrence: US)
  Receive Date: 20170721
  Receipt Date: 20170721
  Transmission Date: 20171127
  Serious: No
  Sender: FDA-Public Use
  Company Number: US-PFIZER INC-2017316506

PATIENT
  Age: 62 Year
  Sex: Male
  Weight: 86.16 kg

DRUGS (1)
  1. XANAX [Suspect]
     Active Substance: ALPRAZOLAM
     Indication: PAIN
     Dosage: 1 MG, 2X/DAY AS NEEDED
     Route: 048

REACTIONS (1)
  - Drug ineffective for unapproved indication [Unknown]
